FAERS Safety Report 4606117-0 (Version None)
Quarter: 2005Q1

REPORT INFORMATION
  Report Type: 
  Country: None (occurrence: None)
  Receive Date: 20050311
  Receipt Date: 20050228
  Transmission Date: 20050727
  Serious: Yes (Hospitalization, Other)
  Sender: FDA-Public Use
  Company Number: PHBS2005IT03446

PATIENT
  Age: 63 Year
  Sex: Female

DRUGS (2)
  1. TRANSFUSIONS [Concomitant]
  2. DESFERRIOXAMINE MESYLATE [Suspect]
     Indication: THALASSAEMIA BETA

REACTIONS (9)
  - ANTI-HBC ANTIBODY [None]
  - BLOOD BILIRUBIN INCREASED [None]
  - HEPATECTOMY [None]
  - HEPATIC NEOPLASM MALIGNANT RESECTABLE [None]
  - HEPATITIS B ANTIBODY [None]
  - HEPATITIS C ANTIBODY POSITIVE [None]
  - HEPATITIS C RNA POSITIVE [None]
  - OSTEOPOROTIC FRACTURE [None]
  - TRANSAMINASES INCREASED [None]
